FAERS Safety Report 7399937-3 (Version None)
Quarter: 2011Q2

REPORT INFORMATION
  Report Type: 
  Country: None (occurrence: None)
  Receive Date: 20110407
  Receipt Date: 20110325
  Transmission Date: 20111010
  Serious: Yes (Other)
  Sender: FDA-Public Use
  Company Number: US-JNJFOC-20110400154

PATIENT
  Sex: Female
  Weight: 52.16 kg

DRUGS (5)
  1. FENTANYL-100 [Suspect]
     Route: 062
  2. MAXALT [Concomitant]
     Indication: MIGRAINE
     Route: 060
  3. FENTANYL-100 [Suspect]
     Route: 062
  4. PROMETHAZINE [Concomitant]
     Indication: NAUSEA
     Route: 048
  5. FENTANYL-100 [Suspect]
     Indication: PAIN
     Route: 062

REACTIONS (9)
  - WITHDRAWAL SYNDROME [None]
  - BEDRIDDEN [None]
  - WRONG TECHNIQUE IN DRUG USAGE PROCESS [None]
  - DRUG INEFFECTIVE [None]
  - PRODUCT QUALITY ISSUE [None]
  - ABNORMAL LOSS OF WEIGHT [None]
  - PAIN [None]
  - PALPITATIONS [None]
  - VOMITING [None]
